FAERS Safety Report 15960013 (Version 1)
Quarter: 2019Q1

REPORT INFORMATION
  Report Type: Spontaneous
  Country: SA (occurrence: SA)
  Receive Date: 20190214
  Receipt Date: 20190214
  Transmission Date: 20190417
  Serious: Yes (Other)
  Sender: FDA-Public Use
  Company Number: SA-ROCHE-2263164

PATIENT

DRUGS (1)
  1. ATEZOLIZUMAB. [Suspect]
     Active Substance: ATEZOLIZUMAB
     Indication: BLADDER TRANSITIONAL CELL CARCINOMA METASTATIC
     Dosage: LAST DOSE ON 20/MAR/2018
     Route: 065
     Dates: start: 20180207

REACTIONS (3)
  - Myelopathy [Unknown]
  - Fatigue [Unknown]
  - Respiratory paralysis [Unknown]
